FAERS Safety Report 4951500-7 (Version None)
Quarter: 2006Q1

REPORT INFORMATION
  Report Type: 
  Country: None (occurrence: None)
  Receive Date: 20060317
  Receipt Date: 20060228
  Transmission Date: 20060701
  Serious: Yes (Hospitalization)
  Sender: FDA-Public Use
  Company Number: 6021097

PATIENT
  Age: 61 Year
  Sex: Male

DRUGS (4)
  1. ATENOLOL [Suspect]
     Indication: ESSENTIAL HYPERTENSION
     Dosage: (50 MG, 1 D); ORAL
     Route: 048
     Dates: start: 19980101, end: 20001201
  2. GOPTEN (TRANDOLAPRIL) [Concomitant]
  3. PRAVACHOL [Concomitant]
  4. ASTRIX 100 [Concomitant]

REACTIONS (1)
  - ERECTILE DYSFUNCTION [None]
